FAERS Safety Report 9603351 (Version 2)
Quarter: 2013Q4

REPORT INFORMATION
  Report Type: Spontaneous
  Country: US (occurrence: US)
  Receive Date: 20131007
  Receipt Date: 20131216
  Transmission Date: 20140711
  Serious: Yes (Death, Hospitalization, Other)
  Sender: FDA-Public Use
  Company Number: US-INCYTE CORPORATION-2013IN002313

PATIENT
  Age: 78 Year
  Sex: Female

DRUGS (7)
  1. JAKAFI [Suspect]
     Indication: MYELODYSPLASTIC SYNDROME
     Dosage: 20 MG, BID
     Route: 065
     Dates: start: 20130618
  2. JAKAFI [Suspect]
     Indication: MYELOFIBROSIS
  3. LISINOPRIL [Concomitant]
  4. AMLODIPINE [Concomitant]
  5. METFORMIN [Concomitant]
  6. METOPROLOL TARTRATE [Concomitant]
  7. PRAVASTATIN [Concomitant]

REACTIONS (2)
  - Death [Fatal]
  - Hypoxia [Unknown]
